FAERS Safety Report 5817672-7 (Version None)
Quarter: 2008Q3

REPORT INFORMATION
  Report Type: 
  Country: None (occurrence: None)
  Receive Date: 20080716
  Receipt Date: 20080703
  Transmission Date: 20090109
  Serious: Yes (Other)
  Sender: FDA-Public Use
  Company Number: 230521J08CAN

PATIENT
  Age: 44 Year
  Sex: Female

DRUGS (4)
  1. REBIF [Suspect]
     Indication: RELAPSING-REMITTING MULTIPLE SCLEROSIS
     Dosage: 22 MCG
     Dates: start: 20000419, end: 20080101
  2. PROZAC [Concomitant]
  3. NEXIUM [Concomitant]
  4. NSAID (NSAID'S) [Concomitant]

REACTIONS (4)
  - DYSPNOEA [None]
  - FACTOR V LEIDEN MUTATION [None]
  - PALPITATIONS [None]
  - PULMONARY EMBOLISM [None]
